FAERS Safety Report 6103259-8 (Version None)
Quarter: 2009Q1

REPORT INFORMATION
  Report Type: 
  Country: None (occurrence: None)
  Receive Date: 20090305
  Receipt Date: 20090303
  Transmission Date: 20090719
  Serious: Yes (Hospitalization)
  Sender: FDA-Public Use
  Company Number: US-ELI_LILLY_AND_COMPANY-US200902007058

PATIENT
  Sex: Male

DRUGS (21)
  1. PEMETREXED [Suspect]
     Indication: NON-SMALL CELL LUNG CANCER
     Dosage: 500 MG/M2, OTHER
     Route: 042
     Dates: start: 20080731
  2. FOLIC ACID [Concomitant]
     Dates: start: 20080731
  3. VITAMIN B-12 [Concomitant]
     Dates: start: 20080731
  4. DEXAMETHASONE [Concomitant]
     Dates: start: 20080731
  5. ADVAIR HFA [Concomitant]
     Indication: ASTHMA
     Dates: start: 20080807
  6. ALBUTEROL [Concomitant]
     Indication: DYSPNOEA
     Dates: start: 20081012
  7. COREG [Concomitant]
     Indication: HYPERTENSION
     Dosage: 6.25 MG, 2/D
     Route: 048
     Dates: start: 20080807
  8. COLCHICINE [Concomitant]
     Indication: ARTHRITIS
     Dosage: 0.6 MG, 2/D
     Route: 048
     Dates: start: 20080812
  9. TRAZODONE HCL [Concomitant]
     Indication: ANTIDEPRESSANT THERAPY
     Dosage: 100 MG, AS NEEDED
     Route: 048
  10. PERCOCET [Concomitant]
     Indication: PAIN
  11. LEVEMIR [Concomitant]
     Indication: DIABETES MELLITUS
     Dosage: 10 U, EACH EVENING
     Route: 058
     Dates: start: 20080812
  12. COZAAR [Concomitant]
     Indication: HYPERTENSION
     Dosage: 100 MG, DAILY (1/D)
     Route: 048
     Dates: start: 20080807
  13. LEXAPRO [Concomitant]
     Indication: ANTIDEPRESSANT THERAPY
     Dosage: 20 MG, DAILY (1/D)
     Route: 048
  14. LIDODERM [Concomitant]
     Indication: PAIN
     Dosage: UNK, DAILY (1/D)
     Route: 061
  15. MEGACE [Concomitant]
     Indication: ANOREXIA
     Dosage: 625 MG, DAILY (1/D)
     Route: 048
  16. OXYCONTIN [Concomitant]
     Indication: ANALGESIC THERAPY
     Dates: start: 20080807
  17. POTASSIUM CHLORIDE [Concomitant]
     Dosage: 20 MEQ, DAILY (1/D)
     Route: 048
     Dates: start: 20081208
  18. TIZANIDINE HCL [Concomitant]
     Indication: MUSCLE RELAXANT THERAPY
     Dosage: 4 MG, EACH EVENING
     Route: 048
     Dates: start: 20080807
  19. WARFARIN SODIUM [Concomitant]
     Indication: ANTICOAGULANT THERAPY
     Dosage: 6 MG, DAILY (1/D)
     Dates: start: 20080807, end: 20090201
  20. GABAPENTIN [Concomitant]
     Indication: NEURALGIA
     Dates: start: 20080807
  21. AVASTIN [Concomitant]
     Indication: CHEMOTHERAPY
     Dates: start: 20080212

REACTIONS (3)
  - COAGULOPATHY [None]
  - GASTROINTESTINAL HAEMORRHAGE [None]
  - PANCYTOPENIA [None]
